FAERS Safety Report 5231403-3 (Version None)
Quarter: 2007Q1

REPORT INFORMATION
  Report Type: 
  Country: None (occurrence: None)
  Receive Date: 20070202
  Receipt Date: 20070117
  Transmission Date: 20070707
  Serious: Yes (Other)
  Sender: FDA-Public Use
  Company Number: PHO-2007-001

PATIENT
  Age: 64 Year
  Sex: Female

DRUGS (1)
  1. PHOTOFRIN [Suspect]
     Indication: PLEURAL MESOTHELIOMA
     Dosage: 2MG/KG IV
     Route: 042
     Dates: start: 20070109

REACTIONS (2)
  - DEEP VEIN THROMBOSIS [None]
  - THROMBOCYTHAEMIA [None]
